FAERS Safety Report 10258597 (Version 1)
Quarter: 2014Q2

REPORT INFORMATION
  Report Type: Spontaneous
  Country: US (occurrence: US)
  Receive Date: 20140625
  Receipt Date: 20140625
  Transmission Date: 20141212
  Serious: No
  Sender: FDA-Public Use
  Company Number: US-BAUSCH-BL-2013-003880

PATIENT
  Age: 59 Year
  Sex: Female

DRUGS (1)
  1. GENTAMICIN SULFATE OPHTHALMIC SOLUTION USP 0.3% [Suspect]
     Indication: CONJUNCTIVITIS
     Dosage: DROP; OPHTHALMIC
     Route: 047
     Dates: start: 201303, end: 201303

REACTIONS (3)
  - Eye irritation [Recovered/Resolved]
  - Eye pruritus [Recovered/Resolved]
  - Ocular hyperaemia [Recovered/Resolved]
